FAERS Safety Report 6927743-X (Version None)
Quarter: 2010Q3

REPORT INFORMATION
  Report Type: 
  Country: None (occurrence: None)
  Receive Date: 20100817
  Receipt Date: 20100716
  Transmission Date: 20110219
  Serious: No
  Sender: FDA-Public Use
  Company Number: US-BAYER-201018453BCC

PATIENT
  Age: 82 Year
  Sex: Female
  Weight: 60 kg

DRUGS (8)
  1. ALEVE (CAPLET) [Suspect]
     Indication: GOUT
     Dosage: TOTAL DAILY DOSE: 220 MG  UNIT DOSE: 220 MG
     Route: 048
  2. ASPIRIN [Suspect]
     Indication: PRODUCT USED FOR UNKNOWN INDICATION
     Route: 065
  3. COLCHICINE [Concomitant]
     Route: 065
  4. FISH OIL [Concomitant]
     Route: 065
  5. UNKNOWN BLOOD PRESSURE MEDICATION [Concomitant]
     Route: 065
  6. COSOPT [Concomitant]
     Route: 065
  7. ALPHAGAN [Concomitant]
     Route: 065
  8. LUMIGAN [Concomitant]
     Route: 065

REACTIONS (2)
  - BLOOD PRESSURE INCREASED [None]
  - GOUT [None]
